FAERS Safety Report 21061322 (Version 1)
Quarter: 2022Q3

REPORT INFORMATION
  Report Type: Spontaneous
  Country: US (occurrence: None)
  Receive Date: 20220709
  Receipt Date: 20220709
  Transmission Date: 20221027
  Serious: Yes (Other)
  Sender: FDA-Public Use
  Company Number: US-ROCHE-3063582

PATIENT
  Sex: Male

DRUGS (10)
  1. ESBRIET [Suspect]
     Active Substance: PIRFENIDONE
     Indication: Idiopathic pulmonary fibrosis
     Dosage: TAKE 1 TABLET 3 TIMES A DAY, 2 TABLETS 3 TIMES A DAY , 3 TABLET 3 TIMES A DAY ONGOING: YES
     Route: 048
     Dates: start: 20220318
  2. PEPTO-BISMOL [Concomitant]
     Active Substance: BISMUTH SUBSALICYLATE
     Dosage: SUS 262MG/15
  3. ASPIRIN [Concomitant]
     Active Substance: ASPIRIN
     Dosage: TBE 81 MG
  4. LEVOTHYROXINE [Concomitant]
     Active Substance: LEVOTHYROXINE
     Dosage: DOSE: 150 MCG
  5. METOPROLOL [Concomitant]
     Active Substance: METOPROLOL
     Dosage: TB2 25 MG
  6. SIMVASTATIN [Concomitant]
     Active Substance: SIMVASTATIN
  7. VITAMIN B12 [Concomitant]
     Active Substance: CYANOCOBALAMIN
     Dosage: TBC 1000 MCG
  8. VITAMIN C [Concomitant]
     Active Substance: ASCORBIC ACID
  9. VITAMIN D3 [Concomitant]
     Active Substance: CHOLECALCIFEROL
     Dosage: 50 MCG (200)
  10. XARELTO [Concomitant]
     Active Substance: RIVAROXABAN

REACTIONS (6)
  - Atrial fibrillation [Unknown]
  - Productive cough [Not Recovered/Not Resolved]
  - Wheezing [Not Recovered/Not Resolved]
  - Dyspnoea [Not Recovered/Not Resolved]
  - Depression [Not Recovered/Not Resolved]
  - Cough [Unknown]
